FAERS Safety Report 20103553 (Version 2)
Quarter: 2022Q3

REPORT INFORMATION
  Report Type: Spontaneous
  Country: US (occurrence: US)
  Receive Date: 20211123
  Receipt Date: 20220707
  Transmission Date: 20221027
  Serious: Yes (Other)
  Sender: FDA-Public Use
  Company Number: US-PFIZER INC-202101569170

PATIENT
  Age: 83 Year
  Sex: Male
  Weight: 77.11 kg

DRUGS (2)
  1. VYNDAMAX [Suspect]
     Active Substance: TAFAMIDIS
     Indication: Cardiac amyloidosis
     Dosage: 61 MG, DAILY
  2. VYNDAMAX [Suspect]
     Active Substance: TAFAMIDIS
     Dosage: 63 MG, 1X/DAY
     Dates: start: 202102, end: 202202

REACTIONS (18)
  - Urinary retention [Unknown]
  - Neurogenic bladder [Unknown]
  - Cardiac amyloidosis [Unknown]
  - Atrial fibrillation [Unknown]
  - Deafness neurosensory [Unknown]
  - Cardiac failure congestive [Unknown]
  - Ventricular tachycardia [Unknown]
  - Arteriosclerosis coronary artery [Unknown]
  - Cardiac failure chronic [Unknown]
  - Pulmonary mass [Unknown]
  - Micturition urgency [Unknown]
  - Urine flow decreased [Unknown]
  - Nocturia [Unknown]
  - Benign prostatic hyperplasia [Unknown]
  - Urinary incontinence [Unknown]
  - Pollakiuria [Unknown]
  - Atrioventricular block second degree [Unknown]
  - Incorrect dose administered [Unknown]
